FAERS Safety Report 6673393-2 (Version None)
Quarter: 2010Q2

REPORT INFORMATION
  Report Type: 
  Country: None (occurrence: None)
  Receive Date: 20100408
  Receipt Date: 20100329
  Transmission Date: 20101027
  Serious: Yes (Other)
  Sender: FDA-Public Use
  Company Number: US-JNJCH-2010007882

PATIENT
  Sex: Male
  Weight: 85.7 kg

DRUGS (1)
  1. ROGAINE [Suspect]
     Indication: HAIR GROWTH ABNORMAL
     Dosage: TEXT:^DIME SIZED^ TWICE A DAY
     Route: 061
     Dates: start: 20100307, end: 20100301

REACTIONS (2)
  - APPLICATION SITE BURN [None]
  - OFF LABEL USE [None]
